FAERS Safety Report 6300098-X (Version None)
Quarter: 2009Q3

REPORT INFORMATION
  Report Type: 
  Country: None (occurrence: None)
  Receive Date: 20090806
  Receipt Date: 20090804
  Transmission Date: 20100115
  Serious: Yes (Life-Threatening, Hospitalization)
  Sender: FDA-Public Use
  Company Number: GB-AMGEN-US351186

PATIENT
  Sex: Female
  Weight: 52 kg

DRUGS (3)
  1. ENBREL [Suspect]
     Indication: JUVENILE ARTHRITIS
     Dosage: 50 MG EVERY 1 TOT
     Route: 058
     Dates: start: 20090527, end: 20090527
  2. FOLIC ACID [Concomitant]
  3. METHOTREXATE [Concomitant]
     Indication: JUVENILE ARTHRITIS
     Route: 048
     Dates: start: 20030101

REACTIONS (3)
  - ANGIOEDEMA [None]
  - OEDEMA PERIPHERAL [None]
  - URTICARIA [None]
